FAERS Safety Report 6809510-0 (Version None)
Quarter: 2010Q2

REPORT INFORMATION
  Report Type: 
  Country: None (occurrence: None)
  Receive Date: 20100630
  Receipt Date: 20100618
  Transmission Date: 20101027
  Serious: Yes (Other)
  Sender: FDA-Public Use
  Company Number: AU-BRISTOL-MYERS SQUIBB COMPANY-15166473

PATIENT
  Age: 38 Year
  Sex: Female

DRUGS (3)
  1. METFORMIN HCL [Suspect]
     Indication: TYPE 2 DIABETES MELLITUS
  2. INSULIN ASPART [Concomitant]
  3. ISOPHANE INSULIN [Concomitant]

REACTIONS (3)
  - LIVE BIRTH [None]
  - PREGNANCY [None]
  - PREMATURE RUPTURE OF MEMBRANES [None]
